FAERS Safety Report 5387319-5 (Version None)
Quarter: 2007Q3

REPORT INFORMATION
  Report Type: 
  Country: None (occurrence: None)
  Receive Date: 20070716
  Receipt Date: 20070706
  Transmission Date: 20080115
  Serious: Yes (Hospitalization, Disabling, Other)
  Sender: FDA-Public Use
  Company Number: PHRM2007FR01821

PATIENT
  Age: 60 Year
  Sex: Female

DRUGS (4)
  1. DEPAKENE [Suspect]
     Indication: EPILEPSY
     Dosage: 500 MG, BID
     Route: 048
  2. DEPAKENE [Suspect]
     Dosage: 500 MG, QID
     Route: 048
  3. TEGRETOL [Suspect]
     Indication: EPILEPSY
     Dosage: 2 DF/DAY
     Route: 048
     Dates: start: 20020101, end: 20030101
  4. TEGRETOL [Suspect]
     Dosage: 1.5 DF, QD
     Route: 048
     Dates: start: 20030101, end: 20030101

REACTIONS (4)
  - ANTICONVULSANT DRUG LEVEL BELOW THERAPEUTIC [None]
  - CEREBRAL HAEMORRHAGE [None]
  - EPILEPSY [None]
  - HEMIPLEGIA [None]
